FAERS Safety Report 6307322-8 (Version None)
Quarter: 2009Q3

REPORT INFORMATION
  Report Type: 
  Country: None (occurrence: None)
  Receive Date: 20090811
  Receipt Date: 20090702
  Transmission Date: 20100115
  Serious: No
  Sender: FDA-Public Use
  Company Number: 1000007262

PATIENT
  Age: 33 Year
  Sex: Female

DRUGS (12)
  1. SAVELLA [Suspect]
     Indication: FIBROMYALGIA
     Dosage: 12.5 MG (12.5 MG, 1 IN 1 D),ORAL : 25 MG (12.5 MG, 2 IN 1 D),ORAL : 50 MG (25 MG, 2 IN 1 D),ORAL
     Route: 048
     Dates: start: 20090506, end: 20090506
  2. SAVELLA [Suspect]
     Indication: FIBROMYALGIA
     Dosage: 12.5 MG (12.5 MG, 1 IN 1 D),ORAL : 25 MG (12.5 MG, 2 IN 1 D),ORAL : 50 MG (25 MG, 2 IN 1 D),ORAL
     Route: 048
     Dates: start: 20090507, end: 20090508
  3. SAVELLA [Suspect]
     Indication: FIBROMYALGIA
     Dosage: 12.5 MG (12.5 MG, 1 IN 1 D),ORAL : 25 MG (12.5 MG, 2 IN 1 D),ORAL : 50 MG (25 MG, 2 IN 1 D),ORAL
     Route: 048
     Dates: start: 20090509, end: 20090512
  4. SAVELLA [Suspect]
     Indication: FIBROMYALGIA
     Dosage: 100 MG (50 MG, 2 IN 1 D),ORAL
     Route: 048
     Dates: start: 20090513, end: 20090527
  5. CYCLOBENZAPRINE [Concomitant]
  6. BIRTH CONTROL PILLS (NOS) [Concomitant]
  7. LORAZEPAM [Concomitant]
  8. IBUPROFEN [Concomitant]
  9. MIRALAX [Concomitant]
  10. COENZYME Q10 [Concomitant]
  11. ACETYL-L-CARNITINE [Concomitant]
  12. 5-HTP [Concomitant]

REACTIONS (6)
  - DIZZINESS [None]
  - FATIGUE [None]
  - HEADACHE [None]
  - MUSCULOSKELETAL STIFFNESS [None]
  - NAUSEA [None]
  - PAIN [None]
